FAERS Safety Report 4308035-4 (Version None)
Quarter: 2004Q1

REPORT INFORMATION
  Report Type: 
  Country: None (occurrence: None)
  Receive Date: 20040301
  Receipt Date: 20030402
  Transmission Date: 20041129
  Serious: No
  Sender: FDA-Public Use
  Company Number: US-BRISTOL-MYERS SQUIBB COMPANY-12228359

PATIENT
  Age: 55 Year
  Sex: Female
  Weight: 68 kg

DRUGS (5)
  1. GLUCOPHAGE [Suspect]
     Indication: DIABETES MELLITUS
     Route: 048
     Dates: start: 20030326
  2. COUMADIN [Concomitant]
  3. ATENOLOL [Concomitant]
  4. ACIPHEX [Concomitant]
  5. ASPIRIN [Concomitant]

REACTIONS (2)
  - DRY MOUTH [None]
  - FATIGUE [None]
